FAERS Safety Report 9771071 (Version 2)
Quarter: 2013Q4

REPORT INFORMATION
  Report Type: Spontaneous
  Country: IN (occurrence: IN)
  Receive Date: 20131218
  Receipt Date: 20131227
  Transmission Date: 20140711
  Serious: Yes (Hospitalization)
  Sender: FDA-Public Use
  Company Number: IN-PFIZER INC-2013360947

PATIENT
  Age: 55 Year
  Sex: Male

DRUGS (3)
  1. RAMIPRIL [Suspect]
     Dosage: UNK
     Route: 065
  2. LITHIUM CARBONATE [Interacting]
     Indication: BIPOLAR DISORDER
     Dosage: 450 MG, DAILY
     Route: 065
  3. CARBAMAZEPINE [Concomitant]
     Indication: BIPOLAR DISORDER
     Dosage: 1000 MG, DAILY

REACTIONS (3)
  - Drug interaction [Unknown]
  - Toxicity to various agents [Unknown]
  - Sinus arrest [Recovered/Resolved]
